FAERS Safety Report 18810146 (Version 1)
Quarter: 2021Q1

REPORT INFORMATION
  Report Type: Report from Study
  Country: US (occurrence: US)
  Receive Date: 20210129
  Receipt Date: 20210129
  Transmission Date: 20210419
  Serious: No
  Sender: FDA-Public Use
  Company Number: US-KYOWAKIRIN-2021BKK001156

PATIENT

DRUGS (1)
  1. CRYSVITA [Suspect]
     Active Substance: BUROSUMAB-TWZA
     Indication: HYPOPHOSPHATAEMIC OSTEOMALACIA
     Dosage: UNK
     Route: 065

REACTIONS (2)
  - Pain [Unknown]
  - Headache [Unknown]
